FAERS Safety Report 7471265-7 (Version None)
Quarter: 2011Q2

REPORT INFORMATION
  Report Type: 
  Country: None (occurrence: None)
  Receive Date: 20110510
  Receipt Date: 20110502
  Transmission Date: 20111010
  Serious: Yes (Life-Threatening, Hospitalization)
  Sender: FDA-Public Use
  Company Number: AT-GILEAD-2011-0039040

PATIENT
  Sex: Male
  Weight: 57 kg

DRUGS (3)
  1. EPIVIR [Concomitant]
     Indication: HIV INFECTION
     Dates: start: 20091217
  2. STOCRIN [Concomitant]
     Indication: HIV INFECTION
     Dates: start: 20091217
  3. VIREAD [Suspect]
     Indication: HIV INFECTION
     Dates: start: 20091217

REACTIONS (1)
  - MYOCARDIAL INFARCTION [None]
